FAERS Safety Report 6017655-0 (Version None)
Quarter: 2008Q4

REPORT INFORMATION
  Report Type: 
  Country: None (occurrence: None)
  Receive Date: 20081223
  Receipt Date: 20081216
  Transmission Date: 20090506
  Serious: Yes (Disabling)
  Sender: FDA-Public Use
  Company Number: FR-ROCHE-603430

PATIENT
  Sex: Female

DRUGS (7)
  1. FUZEON [Suspect]
     Dosage: FORM: INJECTABLE SOLUTION
     Route: 058
     Dates: start: 20080327, end: 20080914
  2. NORVIR [Suspect]
     Route: 048
     Dates: start: 20080327
  3. REYATAZ [Suspect]
     Route: 048
     Dates: start: 20080327
  4. TRUVADA [Suspect]
     Route: 048
     Dates: start: 20080327
  5. GLUCOPHAGE [Concomitant]
     Indication: DIABETES MELLITUS
  6. ROVALCYTE [Concomitant]
     Dates: end: 20080523
  7. WELLVONE [Concomitant]
     Dates: end: 20080523

REACTIONS (2)
  - AGEUSIA [None]
  - ANOSMIA [None]
